FAERS Safety Report 9701358 (Version 1)
Quarter: 2013Q4

REPORT INFORMATION
  Report Type: Spontaneous
  Country: US (occurrence: US)
  Receive Date: 20131121
  Receipt Date: 20131121
  Transmission Date: 20140711
  Serious: No
  Sender: FDA-Public Use
  Company Number: US-GILEAD-2008-0016565

PATIENT
  Age: 66 Year
  Sex: Female

DRUGS (2)
  1. LETAIRIS [Suspect]
     Indication: PULMONARY ARTERIAL HYPERTENSION
     Dosage: X 1 MONTH
  2. LETAIRIS [Suspect]
     Dosage: X 3 MONTHS

REACTIONS (1)
  - Drug ineffective [None]
